FAERS Safety Report 6857180-8 (Version None)
Quarter: 2010Q3

REPORT INFORMATION
  Report Type: 
  Country: None (occurrence: None)
  Receive Date: 20100719
  Receipt Date: 20091221
  Transmission Date: 20110219
  Serious: No
  Sender: FDA-Public Use
  Company Number: US-KINGPHARMUSA00001-K200901598

PATIENT
  Sex: Female
  Weight: 49.887 kg

DRUGS (6)
  1. LEVOXYL [Suspect]
     Indication: HYPOTHYROIDISM
     Dosage: 88 MCG, UNK
     Route: 048
     Dates: end: 20080801
  2. LEVOXYL [Suspect]
     Dosage: UNK
     Dates: start: 20091222
  3. CYTOMEL [Suspect]
     Indication: HYPOTHYROIDISM
     Dosage: 2.5 MCG, UNK
     Route: 048
  4. CYTOMEL [Suspect]
     Dosage: 1/4-1/2 TABLET EVERY 3 HOURS (5 TIMES A DAY)
     Dates: end: 20080801
  5. FLUCONAZOLE [Suspect]
     Indication: CANDIDIASIS
     Dosage: UNK, BID
     Dates: end: 20080701
  6. SEX HORMONE REPLACEMENT [Concomitant]

REACTIONS (1)
  - HEADACHE [None]
